FAERS Safety Report 9280565 (Version 2)
Quarter: 2013Q2

REPORT INFORMATION
  Report Type: Spontaneous
  Country: IT (occurrence: IT)
  Receive Date: 20130509
  Receipt Date: 20130522
  Transmission Date: 20140414
  Serious: Yes (Hospitalization)
  Sender: FDA-Public Use
  Company Number: IT-ROCHE-1222921

PATIENT
  Age: 59 Year
  Sex: Male

DRUGS (3)
  1. TORADOL [Suspect]
     Indication: MYALGIA
     Route: 030
     Dates: start: 20130323, end: 20130331
  2. VOLTAREN [Suspect]
     Indication: MYALGIA
     Route: 030
     Dates: start: 20130323, end: 20130331
  3. CARDURA [Concomitant]
     Route: 048
     Dates: start: 19980301, end: 20130401

REACTIONS (2)
  - Duodenal ulcer [Recovering/Resolving]
  - Melaena [Recovering/Resolving]
